FAERS Safety Report 21085930 (Version 1)
Quarter: 2022Q3

REPORT INFORMATION
  Report Type: Spontaneous
  Country: SE (occurrence: SE)
  Receive Date: 20220715
  Receipt Date: 20220715
  Transmission Date: 20221026
  Serious: Yes (Other)
  Sender: FDA-Public Use
  Company Number: None

PATIENT
  Age: 85 Year
  Sex: Male

DRUGS (1)
  1. JARDIANCE [Suspect]
     Active Substance: EMPAGLIFLOZIN
     Indication: Product used for unknown indication
     Dates: end: 20220622

REACTIONS (1)
  - Abdominal pain [Unknown]

NARRATIVE: CASE EVENT DATE: 20220101
